FAERS Safety Report 23650177 (Version 4)
Quarter: 2024Q2

REPORT INFORMATION
  Report Type: Report from Study
  Country: NL (occurrence: NL)
  Receive Date: 20240319
  Receipt Date: 20240629
  Transmission Date: 20240716
  Serious: Yes (Disabling)
  Sender: FDA-Public Use
  Company Number: NL-ABBVIE-5516022

PATIENT
  Sex: Male

DRUGS (14)
  1. CARBIDOPA\LEVODOPA [Suspect]
     Active Substance: CARBIDOPA\LEVODOPA
     Indication: Parkinson^s disease
     Dosage: MD: 11.0ML, CD: 4.2ML/H, ED: 1.5ML?REMAINS AT 16 HOURS
     Route: 050
     Dates: start: 20240116, end: 20240118
  2. CARBIDOPA\LEVODOPA [Suspect]
     Active Substance: CARBIDOPA\LEVODOPA
     Dosage: MD: 11.0ML, CD: 4.4ML/H, ED: 1.5ML?REMAINS AT 16 HOURS
     Route: 050
     Dates: start: 20240118, end: 20240313
  3. CARBIDOPA\LEVODOPA [Suspect]
     Active Substance: CARBIDOPA\LEVODOPA
     Dosage: MD 11.0ML CD 4.3ML ED 1.5ML REMAINS AT 16?REMAINS AT 16
     Route: 050
     Dates: start: 20231129, end: 20231129
  4. CARBIDOPA\LEVODOPA [Suspect]
     Active Substance: CARBIDOPA\LEVODOPA
     Dosage: MD: 11.0ML, CD: 4.2ML/H, ED: 1.0ML?REMAINS AT 16
     Route: 050
     Dates: start: 20231214, end: 20240116
  5. CARBIDOPA\LEVODOPA [Suspect]
     Active Substance: CARBIDOPA\LEVODOPA
     Dosage: MD: 11.0ML, CD: 4.1ML/H, ED: 1.5ML?REMAINS AT 16 HOURS
     Route: 050
     Dates: start: 20240313, end: 20240326
  6. CARBIDOPA\LEVODOPA [Suspect]
     Active Substance: CARBIDOPA\LEVODOPA
     Dosage: MD: 11.5ML, CD: 4.3ML/H, ED: 1.5ML, DRUG END DATE-2024?REMAINS AT 16 HOURS
     Route: 050
     Dates: start: 20240326
  7. CARBIDOPA\LEVODOPA [Suspect]
     Active Substance: CARBIDOPA\LEVODOPA
     Dosage: MD: 8.0ML; CD: 4.3ML/H; ED: 1.5ML
     Route: 050
     Dates: start: 20231122, end: 20231129
  8. CARBIDOPA\LEVODOPA [Suspect]
     Active Substance: CARBIDOPA\LEVODOPA
     Dosage: MD 11.0ML CD 4.3ML ED 1.5ML  REMAINS AT 16
     Route: 050
     Dates: start: 20231129, end: 20231205
  9. CARBIDOPA\LEVODOPA [Suspect]
     Active Substance: CARBIDOPA\LEVODOPA
     Dosage: MD: 8.0ML; CD: 3.1ML/H; ED: 1.0ML
     Route: 050
     Dates: start: 20231120, end: 20231122
  10. CARBIDOPA\LEVODOPA [Suspect]
     Active Substance: CARBIDOPA\LEVODOPA
     Dosage: MD 11.0ML CD 4.2ML ED 1.5ML :REMAINS AT 16
     Route: 050
     Dates: start: 20231205, end: 20231214
  11. CARBIDOPA\LEVODOPA [Suspect]
     Active Substance: CARBIDOPA\LEVODOPA
     Dosage: REMAINS AT 16 HOURS,
     Route: 050
     Dates: start: 2024
  12. CARBIDOPA\LEVODOPA [Suspect]
     Active Substance: CARBIDOPA\LEVODOPA
  13. MOVICOLON [Concomitant]
     Active Substance: POLYETHYLENE GLYCOL 3350\POTASSIUM CHLORIDE\SODIUM BICARBONATE\SODIUM CHLORIDE
     Indication: Gastrointestinal motility disorder
     Dosage: TIME INTERVAL: 0.33333333 WEEKS
  14. MOVICOLON [Concomitant]
     Active Substance: POLYETHYLENE GLYCOL 3350\POTASSIUM CHLORIDE\SODIUM BICARBONATE\SODIUM CHLORIDE
     Indication: Gastrointestinal motility disorder

REACTIONS (33)
  - Skin laceration [Not Recovered/Not Resolved]
  - Speech disorder [Recovering/Resolving]
  - Gait disturbance [Not Recovered/Not Resolved]
  - Dependent personality disorder [Not Recovered/Not Resolved]
  - Device issue [Unknown]
  - Freezing phenomenon [Not Recovered/Not Resolved]
  - Cognitive disorder [Not Recovered/Not Resolved]
  - Mental disability [Unknown]
  - Feeling abnormal [Not Recovered/Not Resolved]
  - Eye disorder [Not Recovered/Not Resolved]
  - Reduced facial expression [Not Recovered/Not Resolved]
  - Infrequent bowel movements [Not Recovered/Not Resolved]
  - On and off phenomenon [Recovered/Resolved]
  - Intentional device misuse [Not Recovered/Not Resolved]
  - Loss of personal independence in daily activities [Not Recovered/Not Resolved]
  - Abnormal dreams [Not Recovered/Not Resolved]
  - Motor dysfunction [Recovering/Resolving]
  - Dyskinesia [Not Recovered/Not Resolved]
  - Somnolence [Not Recovered/Not Resolved]
  - Speech disorder [Recovered/Resolved]
  - Musculoskeletal stiffness [Recovered/Resolved]
  - Pain in extremity [Recovered/Resolved]
  - Dyskinesia [Recovering/Resolving]
  - Dysphonia [Not Recovered/Not Resolved]
  - Movement disorder [Not Recovered/Not Resolved]
  - Unevaluable event [Not Recovered/Not Resolved]
  - Hallucination [Not Recovered/Not Resolved]
  - Bowel movement irregularity [Unknown]
  - Intellectual disability [Unknown]
  - Device use error [Recovered/Resolved]
  - Device issue [Unknown]
  - Speech disorder [Not Recovered/Not Resolved]
  - On and off phenomenon [Not Recovered/Not Resolved]

NARRATIVE: CASE EVENT DATE: 20230101
